FAERS Safety Report 5799323-3 (Version None)
Quarter: 2008Q3

REPORT INFORMATION
  Report Type: 
  Country: None (occurrence: None)
  Receive Date: 20080702
  Receipt Date: 20080624
  Transmission Date: 20090109
  Serious: Yes (Hospitalization)
  Sender: FDA-Public Use
  Company Number: ES-PFIZER INC-2008052588

PATIENT
  Age: 78 Year
  Sex: Female

DRUGS (6)
  1. ZITHROMAX [Suspect]
     Route: 048
     Dates: start: 20080326, end: 20080328
  2. PANTOPRAZOLE SODIUM [Concomitant]
     Route: 048
     Dates: start: 20061108, end: 20080412
  3. MEMANTINE HCL [Concomitant]
     Route: 048
  4. OSVICAL D [Concomitant]
     Route: 048
  5. REXER [Concomitant]
     Route: 048
  6. PAROXETINE HCL [Concomitant]
     Route: 048

REACTIONS (1)
  - AUTOIMMUNE THROMBOCYTOPENIA [None]
